FAERS Safety Report 14639329 (Version 1)
Quarter: 2018Q1

REPORT INFORMATION
  Report Type: Spontaneous
  Country: US (occurrence: US)
  Receive Date: 20180315
  Receipt Date: 20180315
  Transmission Date: 20180509
  Serious: No
  Sender: FDA-Public Use
  Company Number: US-ENDO PHARMACEUTICALS INC-2017-005756

PATIENT
  Sex: Female

DRUGS (1)
  1. PRAMIPEXOLE. [Suspect]
     Active Substance: PRAMIPEXOLE
     Indication: PARKINSON^S DISEASE
     Dosage: UNK UNK, UNKNOWN
     Route: 065
     Dates: start: 201702

REACTIONS (2)
  - Parkinsonism [Unknown]
  - Adverse event [Unknown]

NARRATIVE: CASE EVENT DATE: 2017
